FAERS Safety Report 23437197 (Version 1)
Quarter: 2024Q1

REPORT INFORMATION
  Report Type: Spontaneous
  Country: US (occurrence: None)
  Receive Date: 20240122
  Receipt Date: 20240122
  Transmission Date: 20240410
  Serious: Yes (Life-Threatening)
  Sender: FDA-Public Use
  Company Number: None

PATIENT
  Age: 29 Year
  Sex: Female

DRUGS (1)
  1. PITOCIN [Suspect]
     Active Substance: OXYTOCIN

REACTIONS (3)
  - Caesarean section [None]
  - Foetal heart rate decreased [None]
  - Device delivery system issue [None]

NARRATIVE: CASE EVENT DATE: 20231004
